FAERS Safety Report 4723860-3 (Version None)
Quarter: 2005Q3

REPORT INFORMATION
  Report Type: 
  Country: None (occurrence: None)
  Receive Date: 20050721
  Receipt Date: 20050630
  Transmission Date: 20060218
  Serious: Yes (Other)
  Sender: FDA-Public Use
  Company Number: US_0403101410

PATIENT
  Age: 74 Year
  Sex: Male
  Weight: 90 kg

DRUGS (8)
  1. HUMULIN 70/30 [Suspect]
     Indication: DIABETES MELLITUS
     Dates: start: 19940101
  2. HUMULIN R [Suspect]
     Indication: DIABETES MELLITUS
     Dates: start: 19950101
  3. GLUCOPHAGE [Concomitant]
  4. LOTREL [Concomitant]
  5. TYLENOL (PARACETAMOL) [Concomitant]
  6. LIPITOR [Concomitant]
  7. ACTONEL [Concomitant]
  8. BENICAR (BENICAR) [Concomitant]

REACTIONS (5)
  - BLOOD GLUCOSE INCREASED [None]
  - CARDIAC OPERATION [None]
  - HYPERTENSION [None]
  - LYMPHOMA [None]
  - STENT PLACEMENT [None]
